FAERS Safety Report 6156385-1 (Version None)
Quarter: 2009Q2

REPORT INFORMATION
  Report Type: 
  Country: None (occurrence: None)
  Receive Date: 20090416
  Receipt Date: 20090407
  Transmission Date: 20091009
  Serious: Yes (Hospitalization, Other)
  Sender: FDA-Public Use
  Company Number: US-BAYER-200916768NA

PATIENT
  Age: 68 Year
  Sex: Female

DRUGS (2)
  1. BETASERON [Suspect]
     Indication: MULTIPLE SCLEROSIS
     Dates: end: 20070801
  2. COPAXONE [Concomitant]
     Dates: start: 20071001

REACTIONS (3)
  - INJECTION SITE INFECTION [None]
  - PAIN IN EXTREMITY [None]
  - THROMBOSIS [None]
